FAERS Safety Report 19013217 (Version 2)
Quarter: 2021Q2

REPORT INFORMATION
  Report Type: Spontaneous
  Country: PL (occurrence: PL)
  Receive Date: 20210315
  Receipt Date: 20210414
  Transmission Date: 20210717
  Serious: Yes (Other)
  Sender: FDA-Public Use
  Company Number: PL-PFIZER INC-2021106467

PATIENT
  Age: 44 Year
  Sex: Female
  Weight: 47 kg

DRUGS (1)
  1. EFECTIN ER [Suspect]
     Active Substance: VENLAFAXINE HYDROCHLORIDE
     Indication: FATIGUE
     Dosage: 37.5 MG
     Dates: start: 20210129, end: 20210131

REACTIONS (30)
  - Anuria [Unknown]
  - Impaired driving ability [Unknown]
  - Dark circles under eyes [Unknown]
  - Tinnitus [Unknown]
  - Stupor [Unknown]
  - Cough [Unknown]
  - Blood pressure increased [Unknown]
  - Tension headache [Unknown]
  - Logorrhoea [Unknown]
  - Off label use [Unknown]
  - Electric shock sensation [Unknown]
  - Thinking abnormal [Unknown]
  - Memory impairment [Unknown]
  - Crystal urine [Unknown]
  - Hypoaesthesia [Unknown]
  - Renal pain [Unknown]
  - Deformity [Unknown]
  - Loss of personal independence in daily activities [Unknown]
  - Hepatic enzyme increased [Unknown]
  - Periorbital swelling [Unknown]
  - Yellow skin [Not Recovered/Not Resolved]
  - Anxiety [Unknown]
  - Amnesia [Unknown]
  - Abdominal distension [Recovered/Resolved]
  - Flatulence [Unknown]
  - Insomnia [Unknown]
  - Dyspnoea [Unknown]
  - Indifference [Unknown]
  - Disturbance in attention [Unknown]
  - Feeling abnormal [Unknown]

NARRATIVE: CASE EVENT DATE: 20210129
